FAERS Safety Report 8059550-1 (Version None)
Quarter: 2012Q1

REPORT INFORMATION
  Report Type: 
  Country: None (occurrence: None)
  Receive Date: 20120120
  Receipt Date: 20120113
  Transmission Date: 20120608
  Serious: Yes (Hospitalization, Other)
  Sender: FDA-Public Use
  Company Number: US-ABBOTT-12P-163-0892831-00

PATIENT
  Sex: Male

DRUGS (4)
  1. ACE INHIBITORS [Concomitant]
     Indication: BLOOD POTASSIUM ABNORMAL
  2. ACE INHIBITORS [Concomitant]
     Indication: BLOOD CREATININE ABNORMAL
     Dates: start: 20110101
  3. ADVICOR [Suspect]
     Indication: BLOOD CHOLESTEROL INCREASED
     Dates: end: 20110101
  4. LIPITOR [Suspect]
     Indication: BLOOD CHOLESTEROL INCREASED
     Route: 048
     Dates: start: 20110101, end: 20111101

REACTIONS (7)
  - BLOOD CREATINE PHOSPHOKINASE INCREASED [None]
  - BLOOD CREATININE ABNORMAL [None]
  - RHABDOMYOLYSIS [None]
  - STENT PLACEMENT [None]
  - BLOOD CHOLESTEROL ABNORMAL [None]
  - FATIGUE [None]
  - BLOOD POTASSIUM ABNORMAL [None]
